FAERS Safety Report 17966108 (Version 3)
Quarter: 2020Q3

REPORT INFORMATION
  Report Type: Report from Study
  Country: US (occurrence: US)
  Receive Date: 20200701
  Receipt Date: 20200903
  Transmission Date: 20201103
  Serious: Yes (Other)
  Sender: FDA-Public Use
  Company Number: US-EMD SERONO-9148700

PATIENT
  Age: 54 Year
  Sex: Female
  Weight: 55.7 kg

DRUGS (3)
  1. REBIF [Suspect]
     Active Substance: INTERFERON BETA-1A
     Indication: RELAPSING-REMITTING MULTIPLE SCLEROSIS
     Route: 058
     Dates: start: 20090514
  2. REBIF [Suspect]
     Active Substance: INTERFERON BETA-1A
     Route: 058
     Dates: start: 2018
  3. BACTRIM [Suspect]
     Active Substance: SULFAMETHOXAZOLE\TRIMETHOPRIM
     Indication: PRODUCT USED FOR UNKNOWN INDICATION

REACTIONS (7)
  - Seborrhoeic keratosis [Unknown]
  - Arthropod bite [Unknown]
  - Injection site erythema [Recovered/Resolved]
  - Injection site rash [Unknown]
  - Eczema nummular [Unknown]
  - Drug hypersensitivity [Unknown]
  - Lyme disease [Unknown]

NARRATIVE: CASE EVENT DATE: 201908
